FAERS Safety Report 7928514-8 (Version None)
Quarter: 2011Q4

REPORT INFORMATION
  Report Type: 
  Country: None (occurrence: None)
  Receive Date: 20111118
  Receipt Date: 20111108
  Transmission Date: 20120403
  Serious: No
  Sender: FDA-Public Use
  Company Number: CA-ELI_LILLY_AND_COMPANY-CA201111002306

PATIENT
  Sex: Female

DRUGS (5)
  1. CLONAZEPAM [Concomitant]
  2. METHOTRIMEPRAZINE [Concomitant]
  3. ZYPREXA [Suspect]
     Indication: SCHIZOPHRENIA
     Dosage: 20 MG, UNK
  4. CHLORPROMAZINE [Concomitant]
  5. LIPITOR [Concomitant]

REACTIONS (4)
  - MENORRHAGIA [None]
  - DIABETES MELLITUS [None]
  - HYPERTENSION [None]
  - CELLULITIS [None]
